FAERS Safety Report 7608880-3 (Version None)
Quarter: 2011Q3

REPORT INFORMATION
  Report Type: 
  Country: None (occurrence: None)
  Receive Date: 20110714
  Receipt Date: 20110707
  Transmission Date: 20111222
  Serious: No
  Sender: FDA-Public Use
  Company Number: US-PFIZER INC-2011154297

PATIENT
  Sex: Female

DRUGS (3)
  1. PREMARIN [Suspect]
     Dosage: UNK
  2. ESTRACE [Suspect]
     Dosage: UNK
  3. ESTRADIOL [Suspect]
     Dosage: UNK

REACTIONS (2)
  - NAUSEA [None]
  - MALAISE [None]
